FAERS Safety Report 19887282 (Version 1)
Quarter: 2021Q3

REPORT INFORMATION
  Report Type: Spontaneous
  Country: FR (occurrence: FR)
  Receive Date: 20210927
  Receipt Date: 20210927
  Transmission Date: 20211014
  Serious: Yes (Other)
  Sender: FDA-Public Use
  Company Number: FR-MYLANLABS-2021M1065679

PATIENT
  Age: 37 Year
  Sex: Male

DRUGS (2)
  1. ALPRAZOLAM MYLAN 0,25 MG [Suspect]
     Active Substance: ALPRAZOLAM
     Indication: ANXIETY
     Dosage: 0.25 MILLIGRAM
  2. ALPRAZOLAM MYLAN 0,25 MG [Suspect]
     Active Substance: ALPRAZOLAM
     Dosage: 0.50 MILLIGRAM

REACTIONS (3)
  - Facial paralysis [Recovered/Resolved]
  - Dry mouth [Recovered/Resolved]
  - Withdrawal syndrome [Recovered/Resolved]

NARRATIVE: CASE EVENT DATE: 20210918
